FAERS Safety Report 7443504-X (Version None)
Quarter: 2011Q2

REPORT INFORMATION
  Report Type: 
  Country: None (occurrence: None)
  Receive Date: 20110428
  Receipt Date: 20110330
  Transmission Date: 20111010
  Serious: No
  Sender: FDA-Public Use
  Company Number: US-BAYER-2011-029707

PATIENT
  Age: 86 Year
  Sex: Female
  Weight: 56 kg

DRUGS (8)
  1. GINKGO BILOBA EXTRACT [Concomitant]
     Dosage: 1 DF, QD
     Route: 048
  2. AVAPRO [Concomitant]
     Indication: ISCHAEMIC HEART DISEASE PROPHYLAXIS
     Dosage: 0.5 DF, QD
     Route: 048
  3. VITAMIN D [COLECALCIFEROL] [Concomitant]
     Dosage: 1 DF, QD
     Route: 048
  4. FISH OIL [Concomitant]
     Dosage: 1 DF, QD
     Route: 048
  5. ALEVE [Suspect]
     Indication: MYALGIA
     Dosage: 1 DF, QD
     Route: 048
  6. MELATONIN [Concomitant]
     Indication: SLEEP DISORDER THERAPY
     Dosage: 1 DF, QD
     Route: 048
  7. LEVOXYL [Concomitant]
     Dosage: QD
     Route: 048
  8. ASCORBIC ACID [Concomitant]
     Dosage: 1 DF, QD

REACTIONS (1)
  - PAIN [None]
